FAERS Safety Report 11145998 (Version 1)
Quarter: 2015Q2

REPORT INFORMATION
  Report Type: Spontaneous
  Country: GB (occurrence: GB)
  Receive Date: 20150528
  Receipt Date: 20150528
  Transmission Date: 20150821
  Serious: Yes (Life-Threatening, Hospitalization, Other)
  Sender: FDA-Public Use
  Company Number: GB-GLAXOSMITHKLINE-GB2015GSK072171

PATIENT
  Age: 36 Year
  Sex: Female

DRUGS (2)
  1. SALAMOL [Suspect]
     Active Substance: ALBUTEROL
     Indication: ASTHMA
     Dosage: UNK UNK, PRN
     Dates: start: 2013, end: 201504
  2. CLENIL MODULITE [Suspect]
     Active Substance: BECLOMETHASONE DIPROPIONATE
     Indication: ASTHMA
     Dosage: 100 UG, UNK
     Route: 055
     Dates: end: 2015

REACTIONS (17)
  - Insomnia [Recovering/Resolving]
  - Dyspnoea [Recovering/Resolving]
  - Cough [Unknown]
  - Chest discomfort [Recovering/Resolving]
  - Palpitations [Recovering/Resolving]
  - Dry mouth [Unknown]
  - Eczema [Recovering/Resolving]
  - Seizure [Recovering/Resolving]
  - Peripheral coldness [Unknown]
  - Syncope [Recovering/Resolving]
  - Blood potassium decreased [Recovering/Resolving]
  - Pruritus [Unknown]
  - Dizziness [Recovering/Resolving]
  - Malaise [Recovering/Resolving]
  - Asthma [Recovering/Resolving]
  - Condition aggravated [Recovering/Resolving]
  - Dry skin [Unknown]
